FAERS Safety Report 23980458 (Version 1)
Quarter: 2024Q2

REPORT INFORMATION
  Report Type: Other
  Country: GB (occurrence: GB)
  Receive Date: 20240617
  Receipt Date: 20240617
  Transmission Date: 20240715
  Serious: Yes (Disabling, Other)
  Sender: FDA-Public Use
  Company Number: GB-GLENMARK PHARMACEUTICALS-2024GMK091436

PATIENT

DRUGS (4)
  1. TOPIRAMATE [Suspect]
     Active Substance: TOPIRAMATE
     Indication: Product used for unknown indication
     Dosage: 2 DOSAGE FORM (2 TABLETS)
     Route: 065
     Dates: start: 20240430, end: 20240509
  2. TOPIRAMATE [Concomitant]
     Active Substance: TOPIRAMATE
     Indication: Product used for unknown indication
     Dosage: UNK (1 TABLET EACH NIGHT FOR 1 WEEK, INCREASE TO 2 TABLETS AT NIGHT FOR 1 WEEK THEN REVIEW)
     Route: 065
     Dates: start: 20240429, end: 20240514
  3. SUMATRIPTAN [Concomitant]
     Active Substance: SUMATRIPTAN
     Indication: Migraine
     Dosage: UNK (1 SPRAY INTO NOSTRIL AT ONSET OF MIGRAINE, USE A 2ND SPRAY IF MIGRAINE RECURS WITHIN 2 HRS)
     Route: 065
     Dates: start: 20240429
  4. SUMATRIPTAN [Concomitant]
     Active Substance: SUMATRIPTAN
     Indication: Migraine
     Dosage: UNK (TAKE 1 TABLET FOR MIGRAINE ATTACK. IF SYMPT COME BACK, TAKE 1 TABLET AT LEAST 2 HRS AFTER 1ST D
     Route: 065
     Dates: start: 20240514

REACTIONS (2)
  - Malignant glaucoma [Recovering/Resolving]
  - Angle closure glaucoma [Recovering/Resolving]

NARRATIVE: CASE EVENT DATE: 20240509
